FAERS Safety Report 6523506-8 (Version None)
Quarter: 2009Q4

REPORT INFORMATION
  Report Type: 
  Country: None (occurrence: None)
  Receive Date: 20091231
  Receipt Date: 20091221
  Transmission Date: 20100525
  Serious: Yes (Other)
  Sender: FDA-Public Use
  Company Number: PHEH2009US18150

PATIENT
  Sex: Male

DRUGS (1)
  1. EXELON [Suspect]
     Dosage: 4.6 MG AND 9.5 MG
     Route: 062

REACTIONS (3)
  - APPLICATION SITE ERYTHEMA [None]
  - DEPRESSION [None]
  - MEMORY IMPAIRMENT [None]
